FAERS Safety Report 15404885 (Version 2)
Quarter: 2018Q3

REPORT INFORMATION
  Report Type: Spontaneous
  Country: US (occurrence: US)
  Receive Date: 20180920
  Receipt Date: 20180929
  Transmission Date: 20181010
  Serious: Yes (Hospitalization)
  Sender: FDA-Public Use
  Company Number: US-HLSUS-2018-US-000614

PATIENT
  Age: 39 Year
  Sex: Male

DRUGS (11)
  1. BACITRACIN. [Concomitant]
     Active Substance: BACITRACIN
  2. FLUOXETINE HYDROCHLORIDE. [Suspect]
     Active Substance: FLUOXETINE HYDROCHLORIDE
     Indication: PRODUCT USED FOR UNKNOWN INDICATION
     Dosage: 20MG
     Route: 065
  3. RISPERDAL [Concomitant]
     Active Substance: RISPERIDONE
     Indication: PRODUCT USED FOR UNKNOWN INDICATION
     Dosage: 2MG QHS
     Route: 048
  4. CLOZAPINE. [Suspect]
     Active Substance: CLOZAPINE
     Dates: start: 201808
  5. HIBICLENS ANTIMICROBIAL [Concomitant]
  6. DEPAKOTE [Concomitant]
     Active Substance: DIVALPROEX SODIUM
     Dosage: 500 MG TID
     Route: 048
  7. CLOZARIL [Suspect]
     Active Substance: CLOZAPINE
     Indication: PRODUCT USED FOR UNKNOWN INDICATION
     Route: 048
  8. ZYPREXA [Concomitant]
     Active Substance: OLANZAPINE
     Indication: PRODUCT USED FOR UNKNOWN INDICATION
     Dosage: 20MG
     Route: 048
  9. ABILIFY [Suspect]
     Active Substance: ARIPIPRAZOLE
     Indication: PRODUCT USED FOR UNKNOWN INDICATION
     Dosage: 20MG, QD
     Route: 065
  10. KEFLEX [Concomitant]
     Active Substance: CEPHALEXIN
  11. HALOPERIDOL. [Suspect]
     Active Substance: HALOPERIDOL
     Indication: PRODUCT USED FOR UNKNOWN INDICATION
     Dosage: 5MG, BID
     Route: 065

REACTIONS (23)
  - Scratch [Unknown]
  - Psychogenic movement disorder [Recovering/Resolving]
  - Psychomotor hyperactivity [Unknown]
  - Hand deformity [Unknown]
  - Treatment noncompliance [Unknown]
  - Skin ulcer [Unknown]
  - Neutropenia [Unknown]
  - Weight increased [Unknown]
  - Abnormal behaviour [Unknown]
  - Psychotic disorder [Unknown]
  - Obsessive-compulsive disorder [Unknown]
  - Speech disorder [Unknown]
  - Schizoaffective disorder [Unknown]
  - Blood pressure increased [Unknown]
  - Anxiety [Unknown]
  - Fear [Unknown]
  - White blood cell count abnormal [Unknown]
  - Psychiatric decompensation [Unknown]
  - Schizophrenia [Unknown]
  - Echolalia [Unknown]
  - Hypertension [Unknown]
  - Hypersomnia [Unknown]
  - Anger [Unknown]

NARRATIVE: CASE EVENT DATE: 200402
